FAERS Safety Report 7651746-3 (Version None)
Quarter: 2011Q3

REPORT INFORMATION
  Report Type: 
  Country: None (occurrence: None)
  Receive Date: 20110802
  Receipt Date: 20110725
  Transmission Date: 20111222
  Serious: Yes (Hospitalization, Other)
  Sender: FDA-Public Use
  Company Number: GB-MERCK-1007GBR00024

PATIENT
  Age: 77 Year
  Sex: Female

DRUGS (3)
  1. GLICLAZIDE [Concomitant]
     Route: 065
  2. GLYBURIDE [Concomitant]
     Route: 065
  3. JANUVIA [Suspect]
     Route: 048
     Dates: end: 20100703

REACTIONS (6)
  - SEPSIS [None]
  - HYPOGLYCAEMIA [None]
  - GASTRIC DISORDER [None]
  - GASTROINTESTINAL DISORDER [None]
  - CEREBROVASCULAR ACCIDENT [None]
  - URINARY TRACT INFECTION [None]
